FAERS Safety Report 11660481 (Version 1)
Quarter: 2015Q4

REPORT INFORMATION
  Report Type: Spontaneous
  Country: US (occurrence: US)
  Receive Date: 20151026
  Receipt Date: 20151026
  Transmission Date: 20160304
  Serious: Yes (Other)
  Sender: FDA-Public Use
  Company Number: US-AKORN PHARMACEUTICALS-2015AKN00617

PATIENT
  Age: 62 Year
  Sex: Male

DRUGS (2)
  1. COGENTIN [Suspect]
     Active Substance: BENZTROPINE MESYLATE
  2. LATUDA [Suspect]
     Active Substance: LURASIDONE HYDROCHLORIDE
     Dosage: 60 MG, UNK

REACTIONS (1)
  - Myoclonus [Unknown]
